FAERS Safety Report 7528787-X (Version None)
Quarter: 2011Q2

REPORT INFORMATION
  Report Type: 
  Country: None (occurrence: None)
  Receive Date: 20110607
  Receipt Date: 20100809
  Transmission Date: 20111010
  Serious: No
  Sender: FDA-Public Use
  Company Number: US-ASTRAZENECA-2010SE37892

PATIENT
  Age: 89 Year
  Sex: Male

DRUGS (7)
  1. PAIN PILLS [Concomitant]
     Indication: ARTHRITIS
     Dosage: UNKNOWN
  2. DIURETICS [Concomitant]
     Dosage: UNKNOWN
  3. CHOLESTEROL- AND TRIGLYCERIDE REDUCERS [Concomitant]
     Dosage: UNKNOWN
  4. ANTIHYPERTENSIVES [Concomitant]
     Dosage: UNKNOWN
  5. BLOOD THINNER MEDICATION [Concomitant]
     Dosage: UNKNOWN
  6. PROSTATE MEDICATION [Concomitant]
     Dosage: UNKNOWN
  7. PRILOSEC OTC [Suspect]
     Route: 048
     Dates: start: 20100804

REACTIONS (4)
  - MALAISE [None]
  - FEELING HOT [None]
  - HYPERHIDROSIS [None]
  - BLOOD PRESSURE INCREASED [None]
